FAERS Safety Report 10607264 (Version 2)
Quarter: 2014Q4

REPORT INFORMATION
  Report Type: Spontaneous
  Country: JP (occurrence: JP)
  Receive Date: 20141125
  Receipt Date: 20141204
  Transmission Date: 20150529
  Serious: Yes (Hospitalization)
  Sender: FDA-Public Use
  Company Number: JP-ACTELION-A-CH2014-107920

PATIENT
  Age: 18 Year
  Sex: Male

DRUGS (1)
  1. BRAZAVES [Suspect]
     Active Substance: MIGLUSTAT
     Indication: NIEMANN-PICK DISEASE
     Dosage: 166.6 MG, TID
     Route: 048

REACTIONS (1)
  - Burns second degree [Recovering/Resolving]

NARRATIVE: CASE EVENT DATE: 20141030
